FAERS Safety Report 7589041-3 (Version None)
Quarter: 2011Q3

REPORT INFORMATION
  Report Type: 
  Country: None (occurrence: None)
  Receive Date: 20110705
  Receipt Date: 20110622
  Transmission Date: 20111222
  Serious: Yes (Other)
  Sender: FDA-Public Use
  Company Number: US-JNJFOC-20110308214

PATIENT
  Sex: Female
  Weight: 79.38 kg

DRUGS (5)
  1. INFLIXIMAB, RECOMBINANT [Suspect]
     Indication: CROHN'S DISEASE
     Dosage: 6 INFUSIONS PRIOR TO TREAT (DATES NOT PTOVIDED)
     Route: 042
  2. INFLIXIMAB, RECOMBINANT [Suspect]
     Route: 042
     Dates: start: 20101004
  3. AZATHIOPRINE [Concomitant]
     Route: 065
  4. MESALAMINE [Concomitant]
     Route: 065
  5. INFLIXIMAB, RECOMBINANT [Suspect]
     Route: 042
     Dates: start: 20030318

REACTIONS (1)
  - FIBROUS HISTIOCYTOMA [None]
